FAERS Safety Report 15295394 (Version 2)
Quarter: 2018Q4

REPORT INFORMATION
  Report Type: Spontaneous
  Country: US (occurrence: US)
  Receive Date: 20180820
  Receipt Date: 20180828
  Transmission Date: 20190204
  Serious: Yes (Other)
  Sender: FDA-Public Use
  Company Number: US-AUROBINDO-AUR-APL-2018-041832

PATIENT
  Age: 60 Year
  Sex: Male

DRUGS (4)
  1. PEGASPARGASE [Interacting]
     Active Substance: PEGASPARGASE
     Indication: LYMPHOMA
     Dosage: 4380 UNITS (2000 UNITS/MJX2.19M2) EVERY THREE TO FOUR WEEKS
     Route: 042
  2. LORAZEPAM. [Suspect]
     Active Substance: LORAZEPAM
     Indication: PRODUCT USED FOR UNKNOWN INDICATION
     Dosage: UNK
     Route: 065
  3. GEMCITABINE [Interacting]
     Active Substance: GEMCITABINE\GEMCITABINE HYDROCHLORIDE
     Indication: LYMPHOMA
     Dosage: 1250 MG/M-
     Route: 065
  4. OXALIPLATIN INJECTION [Suspect]
     Active Substance: OXALIPLATIN
     Indication: LYMPHOMA
     Dosage: 85 MILLIGRAM/SQ. METER, GIVEN EVERY 14 DAYS
     Route: 042

REACTIONS (4)
  - Nausea [Recovering/Resolving]
  - Vomiting [Recovering/Resolving]
  - Amylase increased [Unknown]
  - Lipase increased [Unknown]
